FAERS Safety Report 7191705-0 (Version None)
Quarter: 2010Q4

REPORT INFORMATION
  Report Type: 
  Country: None (occurrence: None)
  Receive Date: 20101223
  Receipt Date: 20101213
  Transmission Date: 20110411
  Serious: Yes (Other)
  Sender: FDA-Public Use
  Company Number: DE-ROCHE-749545

PATIENT

DRUGS (1)
  1. ROACTEMRA [Suspect]
     Route: 065

REACTIONS (1)
  - NEOPLASM MALIGNANT [None]
